FAERS Safety Report 4429307-9 (Version None)
Quarter: 2004Q3

REPORT INFORMATION
  Report Type: 
  Country: None (occurrence: None)
  Receive Date: 20040818
  Receipt Date: 20040818
  Transmission Date: 20050211
  Serious: Yes (Disabling)
  Sender: FDA-Public Use
  Company Number: None

PATIENT
  Sex: Female
  Weight: 56.6996 kg

DRUGS (2)
  1. DEPO-PROVERA [Suspect]
     Indication: CONTRACEPTION
     Dosage: 150 MG IM [ 2 SHOTS, 11 WEEKS APART SEPT 2003 AND DEC 2003]
     Route: 030
     Dates: start: 20030901
  2. DEPO-PROVERA [Suspect]
     Indication: CONTRACEPTION
     Dosage: 150 MG IM [ 2 SHOTS, 11 WEEKS APART SEPT 2003 AND DEC 2003]
     Route: 030
     Dates: start: 20031201

REACTIONS (5)
  - DRUG INEFFECTIVE [None]
  - DYSFUNCTIONAL UTERINE BLEEDING [None]
  - MUSCLE CRAMP [None]
  - UTERINE PROLAPSE [None]
  - VAGINAL HAEMORRHAGE [None]
